FAERS Safety Report 6792752-0 (Version None)
Quarter: 2010Q2

REPORT INFORMATION
  Report Type: 
  Country: None (occurrence: None)
  Receive Date: 20100624
  Receipt Date: 20081024
  Transmission Date: 20101027
  Serious: No
  Sender: FDA-Public Use
  Company Number: US-PFIZER INC-2008076653

PATIENT
  Sex: Female

DRUGS (3)
  1. AROMASIN [Suspect]
     Dates: end: 20080501
  2. CARBOPLATIN [Concomitant]
  3. GEMZAR [Concomitant]

REACTIONS (1)
  - DISEASE PROGRESSION [None]
